FAERS Safety Report 20345711 (Version 1)
Quarter: 2022Q1

REPORT INFORMATION
  Report Type: Spontaneous
  Country: US (occurrence: None)
  Receive Date: 20220115
  Receipt Date: 20220115
  Transmission Date: 20220423
  Serious: Yes (Hospitalization)
  Sender: FDA-Public Use
  Company Number: None

PATIENT
  Age: 45 Year
  Sex: Male
  Weight: 84.4 kg

DRUGS (4)
  1. ETOPOSIDE [Suspect]
     Active Substance: ETOPOSIDE
     Indication: Product used for unknown indication
     Dates: start: 20160716, end: 20161010
  2. CARBOPLATIN [Suspect]
     Active Substance: CARBOPLATIN
     Indication: Product used for unknown indication
     Dates: start: 20160715, end: 20161010
  3. IFOSFAMIDE [Suspect]
     Active Substance: IFOSFAMIDE
     Indication: Product used for unknown indication
     Dates: start: 20160715, end: 20160808
  4. TAXOL [Suspect]
     Active Substance: PACLITAXEL
     Indication: Product used for unknown indication
     Dates: start: 20160715, end: 20160808

REACTIONS (5)
  - Anaemia [None]
  - Thrombocytopenia [None]
  - Acute myeloid leukaemia [None]
  - Packed red blood cell transfusion [None]
  - Allogenic stem cell transplantation [None]

NARRATIVE: CASE EVENT DATE: 20211221
